FAERS Safety Report 9033057 (Version 3)
Quarter: 2013Q4

REPORT INFORMATION
  Report Type: Spontaneous
  Country: FR (occurrence: None)
  Receive Date: 20130109
  Receipt Date: 20131015
  Transmission Date: 20140711
  Serious: Yes (Life-Threatening, Hospitalization)
  Sender: FDA-Public Use
  Company Number: 2012FR000996

PATIENT
  Age: 79 Year
  Sex: Male
  Weight: 78 kg

DRUGS (7)
  1. PONATINIB [Suspect]
     Indication: CHRONIC MYELOID LEUKAEMIA
     Route: 048
     Dates: start: 20110629
  2. COVERSYL [Concomitant]
  3. PLAVIX [Concomitant]
  4. ZOCOR (SIMVASTATIN) [Concomitant]
  5. SELOKEN [Concomitant]
  6. KARDEGIC [Concomitant]
  7. INIPOMP [Concomitant]

REACTIONS (2)
  - Acute coronary syndrome [None]
  - Coronary artery stenosis [None]
